FAERS Safety Report 11198676 (Version 1)
Quarter: 2015Q2

REPORT INFORMATION
  Report Type: Spontaneous
  Country: US (occurrence: US)
  Receive Date: 20150618
  Receipt Date: 20150618
  Transmission Date: 20150821
  Serious: Yes (Life-Threatening, Hospitalization, Other)
  Sender: FDA-Public Use
  Company Number: US-JNJFOC-20150612359

PATIENT
  Age: 63 Year
  Sex: Male

DRUGS (8)
  1. DILTIAZEM [Interacting]
     Active Substance: DILTIAZEM
     Indication: HYPERTENSION
     Dosage: DAILY DOSE 240MG
     Route: 048
  2. DOXYCYCLINE. [Concomitant]
     Active Substance: DOXYCYCLINE
     Indication: STREPTOCOCCAL SEPSIS
     Route: 065
  3. RIVAROXABAN [Suspect]
     Active Substance: RIVAROXABAN
     Indication: ATRIAL FIBRILLATION
     Dosage: DAILY DOSE 20MG
     Route: 048
  4. RIVAROXABAN [Suspect]
     Active Substance: RIVAROXABAN
     Indication: ANTICOAGULANT THERAPY
     Dosage: DAILY DOSE 20MG
     Route: 048
  5. ASPIRIN. [Concomitant]
     Active Substance: ASPIRIN
     Dosage: DAILY DOSE 81MG
     Route: 065
  6. METOPROLOL [Concomitant]
     Active Substance: METOPROLOL
     Indication: HYPERTENSION
     Route: 065
  7. LOSARTAN [Concomitant]
     Active Substance: LOSARTAN
     Indication: HYPERTENSION
     Route: 065
  8. CEFTRIAXONE. [Concomitant]
     Active Substance: CEFTRIAXONE
     Indication: STREPTOCOCCAL SEPSIS
     Route: 065

REACTIONS (5)
  - Multi-organ failure [Recovered/Resolved]
  - Pericardial haemorrhage [Recovering/Resolving]
  - Cardiogenic shock [Unknown]
  - Ischaemic hepatitis [Recovered/Resolved]
  - Drug interaction [Unknown]
